FAERS Safety Report 6671399-0 (Version None)
Quarter: 2010Q2

REPORT INFORMATION
  Report Type: 
  Country: None (occurrence: None)
  Receive Date: 20100407
  Receipt Date: 20100329
  Transmission Date: 20101027
  Serious: Yes (Hospitalization)
  Sender: FDA-Public Use
  Company Number: Z0003502A

PATIENT
  Age: 59 Year
  Sex: Female
  Weight: 91 kg

DRUGS (4)
  1. ADVAIR DISKUS 100/50 [Suspect]
     Indication: CHRONIC OBSTRUCTIVE PULMONARY DISEASE
     Route: 055
     Dates: start: 20100215, end: 20100228
  2. SPIRIVA [Concomitant]
     Indication: CHRONIC OBSTRUCTIVE PULMONARY DISEASE
     Dosage: 18MCG PER DAY
     Route: 055
     Dates: start: 20091001, end: 20100201
  3. ADVAIR DISKUS 100/50 [Concomitant]
     Dosage: 250MCG TWICE PER DAY
     Route: 055
     Dates: start: 20091001, end: 20100212
  4. SPIRIVA [Concomitant]
     Dosage: 18MCG PER DAY
     Route: 055
     Dates: start: 20091001, end: 20100207

REACTIONS (1)
  - CHRONIC OBSTRUCTIVE PULMONARY DISEASE [None]
